FAERS Safety Report 16141672 (Version 2)
Quarter: 2019Q2

REPORT INFORMATION
  Report Type: Spontaneous
  Country: JP (occurrence: JP)
  Receive Date: 20190401
  Receipt Date: 20190506
  Transmission Date: 20190711
  Serious: Yes (Disabling, Other)
  Sender: FDA-Public Use
  Company Number: JP-ACTELION-A-CH2019-188408

PATIENT
  Age: 92 Year
  Sex: Female

DRUGS (1)
  1. UPTRAVI [Suspect]
     Active Substance: SELEXIPAG
     Indication: PRODUCT USED FOR UNKNOWN INDICATION
     Dosage: 0.4 MG, QD
     Route: 048
     Dates: start: 20190122

REACTIONS (4)
  - Carotid artery occlusion [Unknown]
  - Cerebral infarction [Unknown]
  - Sensory disturbance [Unknown]
  - Hemiplegia [Unknown]

NARRATIVE: CASE EVENT DATE: 20190210
